FAERS Safety Report 6441183-1 (Version None)
Quarter: 2009Q4

REPORT INFORMATION
  Report Type: 
  Country: None (occurrence: None)
  Receive Date: 20091113
  Receipt Date: 20091113
  Transmission Date: 20100525
  Serious: Yes (Other)
  Sender: FDA-Public Use
  Company Number: None

PATIENT
  Age: 48 Year
  Sex: Male
  Weight: 113.3993 kg

DRUGS (9)
  1. METHADONE HCL [Suspect]
     Indication: PAIN
     Dosage: 10 MG + 15 MG A.M. + P.M.
     Dates: start: 20091020, end: 20091112
  2. NEXIUM [Concomitant]
  3. SINGULAIR [Concomitant]
  4. ENALAPRIL MALEATE [Concomitant]
  5. PROVIGIL [Concomitant]
  6. SIMVASTATIN [Concomitant]
  7. FISH OIL [Concomitant]
  8. VIT D3 [Concomitant]
  9. ASPIRIN [Concomitant]

REACTIONS (2)
  - SLEEP DISORDER [None]
  - WITHDRAWAL SYNDROME [None]
